FAERS Safety Report 9659418 (Version 1)
Quarter: 2013Q4

REPORT INFORMATION
  Report Type: Spontaneous
  Country: FR (occurrence: FR)
  Receive Date: 20131031
  Receipt Date: 20131031
  Transmission Date: 20140711
  Serious: Yes (Other)
  Sender: FDA-Public Use
  Company Number: PHHY2013FR123070

PATIENT
  Sex: Male

DRUGS (7)
  1. AMOXICILLIN+CLAVULANATE SANDOZ [Suspect]
     Dosage: 6 G, QD
     Route: 042
  2. BRILIQUE [Concomitant]
     Dosage: 90 MG, UNK
  3. FUROSEMIDE RENAUDIN [Concomitant]
  4. TERBUTALINE ARROW [Concomitant]
  5. NORADRENALINE AGUETTANT [Concomitant]
  6. VALIUM [Concomitant]
  7. ATARAX [Concomitant]

REACTIONS (1)
  - Bradycardia [Recovered/Resolved]
